FAERS Safety Report 4509033-8 (Version None)
Quarter: 2004Q4

REPORT INFORMATION
  Report Type: 
  Country: None (occurrence: None)
  Receive Date: 20041119
  Receipt Date: 20041119
  Transmission Date: 20050328
  Serious: Yes (Disabling)
  Sender: FDA-Public Use
  Company Number: None

PATIENT
  Age: 76 Year
  Sex: Female
  Weight: 64.4108 kg

DRUGS (4)
  1. LEVAQUIN [Suspect]
     Indication: ACUTE SINUSITIS
     Dosage: 1 QD ORALLY
     Route: 048
     Dates: start: 20040216
  2. LEVAQUIN [Suspect]
     Indication: DRUG HYPERSENSITIVITY
     Dosage: 1 QD ORALLY
     Route: 048
     Dates: start: 20040216
  3. NORVASC [Concomitant]
  4. THYROID TAB [Concomitant]

REACTIONS (10)
  - DYSPEPSIA [None]
  - DYSPHAGIA [None]
  - HAEMATURIA [None]
  - HYPOAESTHESIA [None]
  - NEPHROLITHIASIS [None]
  - OEDEMA PERIPHERAL [None]
  - PAIN IN EXTREMITY [None]
  - PARAESTHESIA [None]
  - RADICULOPATHY [None]
  - URTICARIA [None]
